FAERS Safety Report 20520807 (Version 1)
Quarter: 2022Q1

REPORT INFORMATION
  Report Type: Report from Study
  Country: US (occurrence: US)
  Receive Date: 20220225
  Receipt Date: 20220225
  Transmission Date: 20220423
  Serious: Yes (Death, Other)
  Sender: FDA-Public Use
  Company Number: US-GILEAD-2021-0544793

PATIENT
  Age: 39 Year
  Sex: Male
  Weight: 105 kg

DRUGS (23)
  1. REMDESIVIR [Suspect]
     Active Substance: REMDESIVIR
     Indication: COVID-19
     Dosage: 100 MG, QD
     Route: 042
     Dates: start: 20210720, end: 20210723
  2. REMDESIVIR [Suspect]
     Active Substance: REMDESIVIR
     Dosage: 100 MG, QD
     Route: 042
     Dates: start: 20210726, end: 20210729
  3. AVIPTADIL [Suspect]
     Active Substance: AVIPTADIL
     Indication: COVID-19
     Dosage: 100 MCG (ALSO REPORTED AS 100 UG), Q8H
     Route: 042
     Dates: start: 20210720, end: 20210802
  4. ACETAMINOPHEN [Concomitant]
     Active Substance: ACETAMINOPHEN
     Dosage: 1000 MG, ONCE
     Route: 042
     Dates: start: 20210724, end: 20210728
  5. VITAMINS [Concomitant]
     Active Substance: VITAMINS
     Dosage: 15 ML, QD, NG TUBE, LIQUID
     Dates: start: 20210727, end: 20210802
  6. VITAMINS [Concomitant]
     Active Substance: VITAMINS
     Dosage: 15 ML, QD LIQUID
     Route: 048
     Dates: start: 20210726, end: 20210726
  7. ALBUMIN HUMAN [Concomitant]
     Active Substance: ALBUMIN HUMAN
     Dosage: 25 G, 25%
     Route: 042
     Dates: start: 20210726, end: 20210727
  8. ALBUMIN HUMAN [Concomitant]
     Active Substance: ALBUMIN HUMAN
     Dosage: 250 ML, 25%, EVERY 30 MIN
     Route: 042
     Dates: start: 20210726, end: 20210727
  9. ALBUMIN HUMAN [Concomitant]
     Active Substance: ALBUMIN HUMAN
     Dosage: UNK, ONCE
     Route: 042
     Dates: start: 20210726, end: 20210726
  10. ALBUTEROL\IPRATROPIUM [Concomitant]
     Active Substance: ALBUTEROL\IPRATROPIUM
     Dosage: 1 PUFF, Q6H
     Route: 055
     Dates: start: 20210720, end: 20210723
  11. ALBUTEROL\IPRATROPIUM [Concomitant]
     Active Substance: ALBUTEROL\IPRATROPIUM
     Dosage: 3 ML, Q4HR
     Route: 055
     Dates: start: 20210720, end: 20210727
  12. ASPIRIN [Concomitant]
     Active Substance: ASPIRIN
     Dosage: 325 MG, QD
     Route: 048
     Dates: start: 20210724, end: 20210725
  13. ASPIRIN [Concomitant]
     Active Substance: ASPIRIN
     Dosage: 325 MG, QD, NG TUBE
     Dates: start: 20210726, end: 20210802
  14. BENZONATATE [Concomitant]
     Active Substance: BENZONATATE
     Dosage: 200 MG, Q8H
     Route: 048
     Dates: start: 20210720, end: 20210725
  15. BUMEX [Concomitant]
     Active Substance: BUMETANIDE
     Dosage: 0.5-2 MG/HR, CONTINIOUS
     Route: 042
     Dates: start: 20210728, end: 20210802
  16. MAXIPIME [Concomitant]
     Active Substance: CEFEPIME HYDROCHLORIDE
     Dosage: 2 G, TID
     Route: 042
     Dates: start: 20210727, end: 20210802
  17. PERIDEX [CHLORHEXIDINE GLUCONATE] [Concomitant]
     Dosage: 15 ML, BID, MT
     Dates: start: 20210726, end: 20210802
  18. DECADRON [Concomitant]
     Active Substance: DEXAMETHASONE
     Dosage: 6 MG
     Route: 042
     Dates: start: 20210719, end: 20210731
  19. COLACE [Concomitant]
     Active Substance: DOCUSATE SODIUM
     Dosage: 100 MG, BID, NG TUBE
     Dates: start: 20210726, end: 20210802
  20. LOVENOX [Concomitant]
     Active Substance: ENOXAPARIN SODIUM
     Dosage: 40 MG, BID
     Route: 058
     Dates: start: 20210719, end: 20210722
  21. LOVENOX [Concomitant]
     Active Substance: ENOXAPARIN SODIUM
     Dosage: 1 MG/KG
     Route: 058
     Dates: start: 20210722, end: 20210724
  22. EPOPROSTENOL [Concomitant]
     Active Substance: EPOPROSTENOL
     Dosage: 8 ML/HR, CONTINIOUS
     Route: 055
     Dates: start: 20210725, end: 20210802
  23. DEXAMETHASONE [Concomitant]
     Active Substance: DEXAMETHASONE
     Dosage: LOW DOSE LESS THAN OR EQUAL TO 8 MG FOR 2 DAYS WHILE IN THE HOSPITAL
     Route: 042

REACTIONS (1)
  - COVID-19 pneumonia [Fatal]

NARRATIVE: CASE EVENT DATE: 20210725
